FAERS Safety Report 20660055 (Version 12)
Quarter: 2023Q1

REPORT INFORMATION
  Report Type: Report from Study
  Country: CN (occurrence: None)
  Receive Date: 20220331
  Receipt Date: 20230320
  Transmission Date: 20230418
  Serious: Yes (Hospitalization)
  Sender: FDA-Public Use
  Company Number: CN-ROCHE-3062582

PATIENT
  Age: 74 Year
  Sex: Male
  Weight: 76.5 kg

DRUGS (6)
  1. TIRAGOLUMAB [Suspect]
     Active Substance: TIRAGOLUMAB
     Indication: Small cell lung cancer extensive stage
     Dosage: ON 14/FEB/2022, RECEIVED MOST RECENT DOSE OF STUDY DRUG PRIOR TO AE/SAE (600 MG)
     Route: 042
     Dates: start: 20210609
  2. ATEZOLIZUMAB [Suspect]
     Active Substance: ATEZOLIZUMAB
     Indication: Small cell lung cancer extensive stage
     Dosage: ON 09/DEC/2021, RECEIVED MOST RECENT DOSE OF STUDY DRUG PRIOR TO AE?ON 14/FEB/2022, RECEIVED MOST RE
     Route: 041
     Dates: start: 20210609
  3. CARBOPLATIN [Suspect]
     Active Substance: CARBOPLATIN
     Indication: Small cell lung cancer extensive stage
     Dosage: ON 14/SEP/2021, RECEIVED MOST RECENT DOSE OF STUDY DRUG PRIOR AE/SAE: 331.71 MG
     Route: 042
     Dates: start: 20210609
  4. ETOPOSIDE [Suspect]
     Active Substance: ETOPOSIDE
     Indication: Small cell lung cancer extensive stage
     Dosage: ON 14/SEP/2021, RECEIVED MOST RECENT DOSE OF STUDY DRUG PRIOR AE/SAE: 140 MG
     Route: 042
     Dates: start: 20210609
  5. AMINOPHYLLINE\CHLORPHENIRAMINE MALEATE\METHOXYPHENAMINE HYDROCHLORIDE\ [Concomitant]
     Active Substance: AMINOPHYLLINE\CHLORPHENIRAMINE MALEATE\METHOXYPHENAMINE HYDROCHLORIDE\NOSCAPINE
     Indication: Cough
     Dosage: DOSE: 2 CAPSULE
     Route: 048
     Dates: start: 20210630
  6. FEBUXOSTAT [Concomitant]
     Active Substance: FEBUXOSTAT
     Indication: Hyperuricaemia
     Route: 048
     Dates: start: 20220131

REACTIONS (1)
  - Renal failure [Not Recovered/Not Resolved]

NARRATIVE: CASE EVENT DATE: 20211230
